FAERS Safety Report 5119805-7 (Version None)
Quarter: 2006Q4

REPORT INFORMATION
  Report Type: 
  Country: None (occurrence: None)
  Receive Date: 20061003
  Receipt Date: 20060929
  Transmission Date: 20070319
  Serious: Yes (Death)
  Sender: FDA-Public Use
  Company Number: 2006UW19068

PATIENT
  Age: 36 Year
  Sex: Female

DRUGS (3)
  1. SEROQUEL [Suspect]
     Route: 048
     Dates: start: 20060101
  2. VALIUM [Concomitant]
  3. PAXIL [Concomitant]

REACTIONS (1)
  - DEATH [None]
